FAERS Safety Report 10162388 (Version 3)
Quarter: 2014Q2

REPORT INFORMATION
  Report Type: Spontaneous
  Country: US (occurrence: US)
  Receive Date: 20140509
  Receipt Date: 20140530
  Transmission Date: 20141212
  Serious: No
  Sender: FDA-Public Use
  Company Number: US-BAYER-2014-068782

PATIENT
  Age: 55 Year
  Sex: Female
  Weight: 58.96 kg

DRUGS (4)
  1. ALEVE CAPLET [Suspect]
     Indication: BACK DISORDER
     Dosage: 2 DF, TID
     Route: 048
     Dates: start: 20140503
  2. ALEVE CAPLET [Suspect]
     Indication: BACK PAIN
     Dosage: 2 DF, EVERY 4-6 HOURS
     Route: 048
  3. SYNTHROID [Concomitant]
  4. ESTROGEN [Concomitant]

REACTIONS (4)
  - Feeling abnormal [Recovered/Resolved]
  - Nausea [Recovered/Resolved]
  - Inappropriate schedule of drug administration [None]
  - Incorrect drug administration duration [None]
